FAERS Safety Report 9986783 (Version 1)
Quarter: 2014Q1

REPORT INFORMATION
  Report Type: Spontaneous
  Country: US (occurrence: US)
  Receive Date: 20140307
  Receipt Date: 20140307
  Transmission Date: 20141002
  Serious: Yes (Other)
  Sender: FDA-Public Use
  Company Number: US-ELI_LILLY_AND_COMPANY-US201402008051

PATIENT
  Sex: Female

DRUGS (5)
  1. HUMALOG LISPRO [Suspect]
     Indication: TYPE 2 DIABETES MELLITUS
     Dosage: UNK
     Route: 065
     Dates: start: 1999
  2. HUMULIN NPH [Suspect]
     Indication: TYPE 2 DIABETES MELLITUS
     Dosage: UNK
     Route: 065
     Dates: start: 1999
  3. GABAPENTIN [Concomitant]
  4. LOSARTAN [Concomitant]
  5. SYNTHROID [Concomitant]

REACTIONS (5)
  - Osteomyelitis [Unknown]
  - Osteomyelitis [Unknown]
  - Foot fracture [Unknown]
  - Incorrect product storage [Recovered/Resolved]
  - Foreign body [Recovered/Resolved]
